FAERS Safety Report 8254715-8 (Version None)
Quarter: 2012Q1

REPORT INFORMATION
  Report Type: 
  Country: None (occurrence: None)
  Receive Date: 20120329
  Receipt Date: 20120317
  Transmission Date: 20120608
  Serious: Yes (Hospitalization)
  Sender: FDA-Public Use
  Company Number: 2012AP000761

PATIENT
  Age: 58 Year
  Sex: Female

DRUGS (5)
  1. SERTRALINE HYDROCHLORIDE [Suspect]
     Indication: BIPOLAR DISORDER
     Dosage: 50 MG;QD
  2. ZIPRASIDONE HCL [Suspect]
     Indication: BIPOLAR DISORDER
     Dosage: 40 MG;BID, 60 MG, 40 MG;BID
  3. QUETIAPINE [Concomitant]
  4. LAMOTRIGINE [Suspect]
     Indication: DEPRESSION
  5. ARIPIPRAZOLE [Concomitant]

REACTIONS (5)
  - DRUG WITHDRAWAL SYNDROME [None]
  - DYSKINESIA [None]
  - RABBIT SYNDROME [None]
  - EXTRAPYRAMIDAL DISORDER [None]
  - PARKINSONISM [None]
